FAERS Safety Report 4821703-0 (Version None)
Quarter: 2005Q4

REPORT INFORMATION
  Report Type: 
  Country: None (occurrence: None)
  Receive Date: 20051103
  Receipt Date: 20051017
  Transmission Date: 20060501
  Serious: Yes (Other)
  Sender: FDA-Public Use
  Company Number: USA0510110955

PATIENT
  Age: 38 Year
  Sex: Female

DRUGS (1)
  1. HUMATROPE [Suspect]
     Dosage: 5 DAY FORM DAY
     Dates: start: 20050120

REACTIONS (8)
  - ABDOMINAL MASS [None]
  - DEVICE FAILURE [None]
  - DYSPNOEA [None]
  - INJECTION SITE REACTION [None]
  - INTESTINAL PERFORATION [None]
  - PHARMACEUTICAL PRODUCT COMPLAINT [None]
  - SKIN DISORDER [None]
  - WEIGHT DECREASED [None]
